FAERS Safety Report 7729490-3 (Version None)
Quarter: 2011Q3

REPORT INFORMATION
  Report Type: 
  Country: None (occurrence: None)
  Receive Date: 20110906
  Receipt Date: 20110825
  Transmission Date: 20111222
  Serious: Yes (Hospitalization, Other)
  Sender: FDA-Public Use
  Company Number: US-JNJFOC-20110811653

PATIENT
  Sex: Male

DRUGS (4)
  1. INVEGA SUSTENNA [Suspect]
     Indication: SCHIZOPHRENIA
     Route: 030
     Dates: start: 20100601
  2. LITHIUM CARBONATE [Suspect]
     Indication: DRUG THERAPY
     Route: 048
     Dates: start: 20110301
  3. THYROID THERAPY [Concomitant]
     Indication: HYPOTHYROIDISM
     Route: 048
     Dates: start: 20100501
  4. LITHIUM CARBONATE [Suspect]
     Route: 048
     Dates: end: 20110301

REACTIONS (4)
  - DELUSION [None]
  - DISTURBANCE IN SOCIAL BEHAVIOUR [None]
  - GOUT [None]
  - DEPRESSION [None]
